FAERS Safety Report 6652787-5 (Version None)
Quarter: 2010Q1

REPORT INFORMATION
  Report Type: 
  Country: None (occurrence: None)
  Receive Date: 20100326
  Receipt Date: 20100318
  Transmission Date: 20100710
  Serious: Yes (Hospitalization, Other)
  Sender: FDA-Public Use
  Company Number: BR-ABBOTT-10P-020-0633276-00

PATIENT
  Sex: Male
  Weight: 73 kg

DRUGS (2)
  1. HUMIRA [Suspect]
     Indication: RHEUMATOID ARTHRITIS
     Route: 058
     Dates: start: 20090501
  2. ATENOLOL CHLORTALIDONE  (ABLOCK PLUS) [Concomitant]
     Indication: BLOOD PRESSURE MANAGEMENT
     Route: 048
     Dates: start: 20000101

REACTIONS (4)
  - AORTIC OCCLUSION [None]
  - FORMICATION [None]
  - MALAISE [None]
  - WEIGHT DECREASED [None]
